FAERS Safety Report 24459331 (Version 1)
Quarter: 2024Q4

REPORT INFORMATION
  Report Type: Report from Study
  Country: CA (occurrence: CA)
  Receive Date: 20241018
  Receipt Date: 20241018
  Transmission Date: 20250115
  Serious: No
  Sender: ROCHE
  Company Number: CA-ROCHE-3530143

PATIENT
  Age: 42 Year
  Sex: Female

DRUGS (17)
  1. RITUXAN [Suspect]
     Active Substance: RITUXIMAB
     Indication: Myelitis transverse
     Dosage: DAY 1, 15
     Route: 041
     Dates: start: 20161031
  2. RITUXAN [Suspect]
     Active Substance: RITUXIMAB
     Route: 042
  3. BILASTINE [Concomitant]
     Active Substance: BILASTINE
     Indication: Urticaria
  4. CYCLOPHOSPHAMIDE [Concomitant]
     Active Substance: CYCLOPHOSPHAMIDE
  5. DIPHENHYDRAMINE HYDROCHLORIDE [Concomitant]
     Active Substance: DIPHENHYDRAMINE HYDROCHLORIDE
     Route: 042
     Dates: start: 20161031
  6. METOPROLOL [Concomitant]
     Active Substance: METOPROLOL
     Indication: Tachycardia
  7. CROMOLYN SODIUM [Concomitant]
     Active Substance: CROMOLYN SODIUM
  8. PLAQUENIL [Concomitant]
     Active Substance: HYDROXYCHLOROQUINE SULFATE
  9. PREVACID [Concomitant]
     Active Substance: LANSOPRAZOLE
  10. PROLIA [Concomitant]
     Active Substance: DENOSUMAB
     Indication: Osteoporosis
  11. SOLU-CORTEF [Concomitant]
     Active Substance: HYDROCORTISONE SODIUM SUCCINATE
     Route: 042
     Dates: start: 20161031
  12. SOLU-CORTEF [Concomitant]
     Active Substance: HYDROCORTISONE SODIUM SUCCINATE
     Route: 042
     Dates: start: 20161114
  13. SYNTHROID [Concomitant]
     Active Substance: LEVOTHYROXINE SODIUM
     Indication: Hypothyroidism
  14. XOLAIR [Concomitant]
     Active Substance: OMALIZUMAB
  15. DEXAMETHASONE [Concomitant]
     Active Substance: DEXAMETHASONE
  16. FENTANYL [Concomitant]
     Active Substance: FENTANYL
  17. AMITRIPTYLINE [Concomitant]
     Active Substance: AMITRIPTYLINE

REACTIONS (1)
  - Gastric infection [Recovering/Resolving]

NARRATIVE: CASE EVENT DATE: 20240301
